FAERS Safety Report 5986037-X (Version None)
Quarter: 2008Q4

REPORT INFORMATION
  Report Type: 
  Country: None (occurrence: None)
  Receive Date: 20081205
  Receipt Date: 20081205
  Transmission Date: 20090506
  Serious: Yes (Other)
  Sender: FDA-Public Use
  Company Number: None

PATIENT
  Sex: Male
  Weight: 70.3075 kg

DRUGS (2)
  1. BONIVA [Suspect]
     Indication: OSTEOPOROSIS
     Dosage: 150 1 PER MONTH PO
     Route: 048
     Dates: start: 20071128, end: 20080828
  2. ACTONEL [Suspect]
     Indication: OSTEOPOROSIS
     Dosage: 150 1 PER MONTH PO
     Route: 048
     Dates: start: 20080828, end: 20081128

REACTIONS (3)
  - ARRHYTHMIA [None]
  - ATRIAL FIBRILLATION [None]
  - RESPIRATORY DISTRESS [None]
